FAERS Safety Report 17288603 (Version 1)
Quarter: 2020Q1

REPORT INFORMATION
  Report Type: Spontaneous
  Country: US (occurrence: US)
  Receive Date: 20200120
  Receipt Date: 20200120
  Transmission Date: 20200409
  Serious: No
  Sender: FDA-Public Use
  Company Number: US-RECRO GAINESVILLE LLC-REPH-2019-000127

PATIENT
  Sex: Female

DRUGS (2)
  1. LOSARTAN. [Concomitant]
     Active Substance: LOSARTAN
     Dosage: 25 MILLIGRAM, QD
     Route: 048
  2. VERAPAMIL HYDROCHLORIDE EXTENDED RELEASE [Suspect]
     Active Substance: VERAPAMIL HYDROCHLORIDE
     Indication: HYPERTENSION
     Dosage: 100 MILLIGRAM, QD
     Route: 048

REACTIONS (1)
  - Pruritus [Not Recovered/Not Resolved]
